FAERS Safety Report 12492711 (Version 1)
Quarter: 2016Q2

REPORT INFORMATION
  Report Type: Spontaneous
  Country: US (occurrence: US)
  Receive Date: 20160623
  Receipt Date: 20160623
  Transmission Date: 20160815
  Serious: Yes (Other)
  Sender: FDA-Public Use
  Company Number: US-TEVA-668822USA

PATIENT
  Age: 62 Year
  Sex: Female

DRUGS (2)
  1. ZECUITY [Suspect]
     Active Substance: SUMATRIPTAN SUCCINATE
     Route: 062
     Dates: start: 20160613, end: 20160613
  2. ZECUITY [Suspect]
     Active Substance: SUMATRIPTAN SUCCINATE
     Route: 062
     Dates: start: 201605, end: 201605

REACTIONS (9)
  - Sunburn [Recovered/Resolved with Sequelae]
  - Application site irritation [Recovered/Resolved]
  - Application site erythema [Recovered/Resolved]
  - Incorrect drug administration duration [Unknown]
  - Application site inflammation [Recovered/Resolved]
  - Dry skin [Not Recovered/Not Resolved]
  - Application site discolouration [Recovered/Resolved]
  - Application site scar [Not Recovered/Not Resolved]
  - Application site pain [Recovered/Resolved]

NARRATIVE: CASE EVENT DATE: 201605
